FAERS Safety Report 6405864-8 (Version None)
Quarter: 2009Q4

REPORT INFORMATION
  Report Type: 
  Country: None (occurrence: None)
  Receive Date: 20091019
  Receipt Date: 20091019
  Transmission Date: 20100525
  Serious: Yes (Death)
  Sender: FDA-Public Use
  Company Number: US-ROXANE LABORATORIES, INC.-2009-RO-01067RO

PATIENT
  Sex: Female

DRUGS (1)
  1. MORPHINE [Suspect]

REACTIONS (1)
  - NEOPLASM MALIGNANT [None]
